FAERS Safety Report 19232769 (Version 3)
Quarter: 2021Q3

REPORT INFORMATION
  Report Type: Spontaneous
  Country: US (occurrence: US)
  Receive Date: 20210507
  Receipt Date: 20210909
  Transmission Date: 20211014
  Serious: Yes (Life-Threatening, Hospitalization, Other)
  Sender: FDA-Public Use
  Company Number: US-AUROBINDO-AUR-APL-2021-018425

PATIENT
  Age: 2 Year
  Sex: Male

DRUGS (2)
  1. FLECAINIDE [Suspect]
     Active Substance: FLECAINIDE
     Dosage: 400 MILLIGRAM, 1 TOTAL
     Route: 065
  2. FLECAINIDE [Suspect]
     Active Substance: FLECAINIDE
     Indication: PRODUCT USED FOR UNKNOWN INDICATION
     Dosage: 2 GRAM IN TOTAL (INGESTION)
     Route: 048

REACTIONS (11)
  - Accidental exposure to product by child [Unknown]
  - Bradycardia [Recovered/Resolved]
  - Haemodynamic instability [Unknown]
  - Toxicity to various agents [Recovered/Resolved]
  - Accidental overdose [Recovered/Resolved]
  - Mental status changes [Unknown]
  - Hypotension [Recovered/Resolved]
  - Electrocardiogram QRS complex abnormal [Recovered/Resolved]
  - Seizure like phenomena [Unknown]
  - Agitation [Recovered/Resolved]
  - Ventricular tachycardia [Recovered/Resolved]
